FAERS Safety Report 5730409-5 (Version None)
Quarter: 2008Q2

REPORT INFORMATION
  Report Type: 
  Country: None (occurrence: None)
  Receive Date: 20080505
  Receipt Date: 20080505
  Transmission Date: 20081010
  Serious: No
  Sender: FDA-Public Use
  Company Number: None

PATIENT
  Age: 28 Year
  Sex: Female
  Weight: 90.7194 kg

DRUGS (1)
  1. LUPRON DEPOT [Suspect]
     Indication: ENDOMETRIOSIS
     Dosage: 1X PER MONTH SQ
     Route: 058
     Dates: start: 20010101, end: 20010606

REACTIONS (14)
  - ANXIETY [None]
  - ASTHENIA [None]
  - BACK PAIN [None]
  - CHEST PAIN [None]
  - DEPRESSION [None]
  - FATIGUE [None]
  - HEADACHE [None]
  - INSOMNIA [None]
  - MUSCLE SPASMS [None]
  - MUSCULAR WEAKNESS [None]
  - MUSCULOSKELETAL PAIN [None]
  - MYALGIA [None]
  - NECK PAIN [None]
  - PAIN IN JAW [None]
